FAERS Safety Report 17010147 (Version 1)
Quarter: 2019Q4

REPORT INFORMATION
  Report Type: Spontaneous
  Country: US (occurrence: US)
  Receive Date: 20191107
  Receipt Date: 20191107
  Transmission Date: 20200122
  Serious: Yes (Other)
  Sender: FDA-Public Use
  Company Number: None

PATIENT

DRUGS (1)
  1. EZETIMIBE 10MG [Suspect]
     Active Substance: EZETIMIBE

REACTIONS (2)
  - Nausea [None]
  - Abdominal discomfort [None]
